FAERS Safety Report 4511314-9 (Version None)
Quarter: 2004Q4

REPORT INFORMATION
  Report Type: 
  Country: None (occurrence: None)
  Receive Date: 20041129
  Receipt Date: 20041115
  Transmission Date: 20050328
  Serious: Yes (Other)
  Sender: FDA-Public Use
  Company Number: AU-JNJFOC-20040903128

PATIENT
  Age: 56 Year
  Sex: Female

DRUGS (2)
  1. CAELYX [Suspect]
     Dosage: 3RD CYCLE
     Route: 042
  2. CAELYX [Suspect]
     Indication: OVARIAN CANCER
     Route: 042

REACTIONS (5)
  - BLISTER [None]
  - DIFFICULTY IN WALKING [None]
  - PALMAR-PLANTAR ERYTHRODYSAESTHESIA SYNDROME [None]
  - SKIN TOXICITY [None]
  - VULVOVAGINAL ULCERATION [None]
